FAERS Safety Report 7729966-9 (Version None)
Quarter: 2011Q3

REPORT INFORMATION
  Report Type: 
  Country: None (occurrence: None)
  Receive Date: 20110901
  Receipt Date: 20110901
  Transmission Date: 20111222
  Serious: Yes (Other)
  Sender: FDA-Public Use
  Company Number: None

PATIENT
  Sex: Female
  Weight: 63.5036 kg

DRUGS (2)
  1. FLUTICASONE PROPIONATE [Concomitant]
  2. GEODON [Suspect]
     Indication: GENERALISED ANXIETY DISORDER
     Dosage: 80 MG 1 PER DAY ORAL
     Route: 048
     Dates: start: 20071201

REACTIONS (1)
  - GLUCOSE TOLERANCE IMPAIRED [None]
